FAERS Safety Report 8144660-0 (Version None)
Quarter: 2012Q1

REPORT INFORMATION
  Report Type: 
  Country: None (occurrence: None)
  Receive Date: 20120217
  Receipt Date: 20120210
  Transmission Date: 20120608
  Serious: Yes (Life-Threatening, Hospitalization, Disabling)
  Sender: FDA-Public Use
  Company Number: DE-JNJFOC-20120206420

PATIENT
  Sex: Female

DRUGS (18)
  1. IRBESARTAN [Concomitant]
  2. ESCITALOPRAM [Concomitant]
  3. PANTOPRAZOLE [Concomitant]
  4. XARELTO [Suspect]
     Route: 048
     Dates: start: 20111202, end: 20111222
  5. NALOXONE HYDROCHLORIDE [Concomitant]
  6. BISOPROLOL FUMARATE [Concomitant]
  7. XARELTO [Suspect]
     Indication: JOINT ARTHROPLASTY
     Route: 048
     Dates: start: 20111202, end: 20111222
  8. TAMBOCOR [Concomitant]
  9. LEVOTHYROXINE SODIUM [Concomitant]
  10. VOLTAREN [Concomitant]
  11. NOVALGIN [Concomitant]
  12. ATORVASTATIN [Concomitant]
  13. LANITOP [Concomitant]
  14. ASPIRIN [Concomitant]
  15. XARELTO [Suspect]
     Indication: THROMBOSIS PROPHYLAXIS
     Route: 048
  16. XARELTO [Suspect]
     Route: 048
  17. MIRTAZAPINE [Concomitant]
  18. PANTOPRAZOLE [Concomitant]

REACTIONS (1)
  - PULMONARY EMBOLISM [None]
